FAERS Safety Report 24593724 (Version 2)
Quarter: 2024Q4

REPORT INFORMATION
  Report Type: Spontaneous
  Country: US (occurrence: US)
  Receive Date: 20241108
  Receipt Date: 20241112
  Transmission Date: 20250115
  Serious: Yes (Other)
  Sender: PFIZER
  Company Number: US-MLMSERVICE-20241029-PI239082-00270-1

PATIENT
  Age: 59 Year
  Sex: Male

DRUGS (1)
  1. METHYLPREDNISOLONE SODIUM SUCCINATE [Suspect]
     Active Substance: METHYLPREDNISOLONE SODIUM SUCCINATE
     Indication: Transplant rejection
     Dosage: 500 MG, 1X/DAY

REACTIONS (2)
  - Hallucination, auditory [Recovered/Resolved]
  - Off label use [Unknown]
